FAERS Safety Report 9499892 (Version 1)
Quarter: 2013Q1

REPORT INFORMATION
  Report Type: Spontaneous
  Country: US (occurrence: None)
  Receive Date: 20130107
  Receipt Date: 20130107
  Transmission Date: 20140127
  Serious: No
  Sender: FDA-Public Use
  Company Number: PHEH2012US021738

PATIENT
  Sex: Female
  Weight: 108.8 kg

DRUGS (10)
  1. GILENYA [Suspect]
     Route: 048
  2. FISH OIL (FISH OIL) [Concomitant]
  3. BABY ASPIRIN (ACETYLSALICYLIC ACID) [Concomitant]
  4. MULTIVITAMINS (ASCORBIC ACID, ERGOCALCIFEROL, FOLIC ACID, NICOTINAMIDE, PANTHENOL, RETINOL, RIBOFLAVIN, THIAMINE HYDROCHLORIDE) [Concomitant]
  5. ERGOCALCIFEROL [Concomitant]
  6. CYMBALTA (DULOXETINE HYDROCHLORIDE) [Concomitant]
  7. PROVIGIL (MODAFINIL) [Concomitant]
  8. TOPAMAX (TOPIRAMATE) [Concomitant]
  9. HYDROCODONE W/APAP (HYDROCODONE, PARACETAMOL) [Concomitant]
  10. SENNA (SENNA ALEXANDRINA) [Concomitant]

REACTIONS (3)
  - Paraesthesia [None]
  - Hypoaesthesia [None]
  - Vision blurred [None]
